FAERS Safety Report 17438650 (Version 2)
Quarter: 2020Q1

REPORT INFORMATION
  Report Type: Spontaneous
  Country: US (occurrence: US)
  Receive Date: 20200220
  Receipt Date: 20200225
  Transmission Date: 20200409
  Serious: No
  Sender: FDA-Public Use
  Company Number: US-LEADING PHARMA LLC-US-2020LEASPO00023

PATIENT
  Age: 58 Year
  Sex: Female
  Weight: 111 kg

DRUGS (2)
  1. INDERAL [Concomitant]
     Active Substance: PROPRANOLOL HYDROCHLORIDE
  2. LORAZEPAM TABLETS USP [Suspect]
     Active Substance: LORAZEPAM

REACTIONS (17)
  - Wrong technique in product usage process [Unknown]
  - Arthritis [Recovered/Resolved]
  - Drug ineffective [Unknown]
  - Palpitations [Recovered/Resolved]
  - Product use in unapproved indication [Unknown]
  - Scratch [Recovered/Resolved]
  - Inappropriate schedule of product administration [Unknown]
  - Product taste abnormal [Recovered/Resolved]
  - Product odour abnormal [Recovered/Resolved]
  - Anxiety [Recovered/Resolved]
  - Feeling abnormal [Recovered/Resolved]
  - Abdominal discomfort [Recovered/Resolved]
  - Headache [Recovered/Resolved]
  - Gastric pH decreased [Recovered/Resolved]
  - Rash [Recovered/Resolved]
  - Palpitations [Recovered/Resolved]
  - Product substitution issue [Unknown]

NARRATIVE: CASE EVENT DATE: 20190925
